FAERS Safety Report 20659795 (Version 1)
Quarter: 2022Q1

REPORT INFORMATION
  Report Type: Spontaneous
  Country: FR (occurrence: FR)
  Receive Date: 20220331
  Receipt Date: 20220331
  Transmission Date: 20220423
  Serious: Yes (Other)
  Sender: FDA-Public Use
  Company Number: None

PATIENT
  Age: 72 Year
  Sex: Female
  Weight: 57 kg

DRUGS (2)
  1. VERAPAMIL HYDROCHLORIDE [Suspect]
     Active Substance: VERAPAMIL HYDROCHLORIDE
     Indication: Prinzmetal angina
     Dosage: 80MG, DURATION 2YEARS, FREQUENCY TIME 1DAYS
     Route: 048
     Dates: start: 201910, end: 20211010
  2. COMIRNATY [Suspect]
     Active Substance: TOZINAMERAN
     Indication: COVID-19 immunisation
     Dosage: D2, COMIRNATY 30 MICROGRAMS/DOSE, DISPERSION TO BE DILUTED FOR SOLUTION FOR INJECTION. MRNA (NUCLEOS
     Route: 030
     Dates: start: 20210715

REACTIONS (1)
  - Loss of consciousness [Recovered/Resolved]

NARRATIVE: CASE EVENT DATE: 20210717
